APPROVED DRUG PRODUCT: TRAVASOL 5.5% W/O ELECTROLYTES
Active Ingredient: AMINO ACIDS
Strength: 5.5% (5.5GM/100ML)
Dosage Form/Route: INJECTABLE;INJECTION
Application: N017493 | Product #004
Applicant: BAXTER HEALTHCARE CORP
Approved: Approved Prior to Jan 1, 1982 | RLD: No | RS: No | Type: DISCN